FAERS Safety Report 8011258-4 (Version None)
Quarter: 2011Q4

REPORT INFORMATION
  Report Type: 
  Country: None (occurrence: None)
  Receive Date: 20111227
  Receipt Date: 20111227
  Transmission Date: 20120403
  Serious: Yes (Other)
  Sender: FDA-Public Use
  Company Number: None

PATIENT
  Age: 63 Year
  Sex: Male
  Weight: 79.378 kg

DRUGS (1)
  1. NATURERELIEF INSTANT WART REMOVE [Suspect]
     Indication: MELANOCYTIC NAEVUS
     Dosage: AS INSTRUCTED
     Dates: start: 20111212, end: 20111212

REACTIONS (1)
  - APPLICATION SITE PAIN [None]
